FAERS Safety Report 7416219-1 (Version None)
Quarter: 2011Q2

REPORT INFORMATION
  Report Type: 
  Country: None (occurrence: None)
  Receive Date: 20110414
  Receipt Date: 20110409
  Transmission Date: 20111010
  Serious: Yes (Other)
  Sender: FDA-Public Use
  Company Number: US-AMGEN-USASP2011018993

PATIENT
  Age: 5 Year
  Sex: Female
  Weight: 20 kg

DRUGS (1)
  1. NEUPOGEN [Suspect]
     Indication: BONE MARROW TRANSPLANT
     Dosage: 100 A?G, QD
     Dates: start: 20101214

REACTIONS (1)
  - DRUG INEFFECTIVE [None]
